FAERS Safety Report 6803636-3 (Version None)
Quarter: 2010Q2

REPORT INFORMATION
  Report Type: 
  Country: None (occurrence: None)
  Receive Date: 20100628
  Receipt Date: 20100601
  Transmission Date: 20101027
  Serious: Yes (Hospitalization)
  Sender: FDA-Public Use
  Company Number: US-BRISTOL-MYERS SQUIBB COMPANY-15163413

PATIENT
  Sex: Male

DRUGS (3)
  1. EFAVIRENZ [Suspect]
     Dosage: LAST DOSE 09JUN2010
     Route: 048
     Dates: start: 20090602
  2. TRUVADA [Suspect]
     Dosage: LAST DOSE 09JUN2010
     Route: 065
     Dates: start: 20090602
  3. XANAX [Concomitant]

REACTIONS (1)
  - WRIST FRACTURE [None]
